FAERS Safety Report 14162648 (Version 1)
Quarter: 2017Q4

REPORT INFORMATION
  Report Type: Spontaneous
  Country: TR (occurrence: TR)
  Receive Date: 20171106
  Receipt Date: 20171106
  Transmission Date: 20180321
  Serious: Yes (Hospitalization)
  Sender: FDA-Public Use
  Company Number: TR-MYLANLABS-2017M1068676

PATIENT
  Age: 74 Year
  Sex: Female

DRUGS (2)
  1. SERTRALINE [Concomitant]
     Active Substance: SERTRALINE HYDROCHLORIDE
     Indication: MAJOR DEPRESSION
     Dosage: 50 MG/DAY
     Route: 065
  2. OLANZAPINE. [Suspect]
     Active Substance: OLANZAPINE
     Indication: MAJOR DEPRESSION
     Dosage: 7.5 MG/DAY
     Route: 065

REACTIONS (4)
  - Tricuspid valve incompetence [Recovered/Resolved]
  - Pulmonary arterial pressure abnormal [Recovered/Resolved]
  - Pulmonary embolism [Recovered/Resolved]
  - Mitral valve incompetence [Recovered/Resolved]
